FAERS Safety Report 9925650 (Version 2)
Quarter: 2014Q1

REPORT INFORMATION
  Report Type: Spontaneous
  Country: FR (occurrence: FR)
  Receive Date: 20140226
  Receipt Date: 20140226
  Transmission Date: 20141002
  Serious: Yes (Other)
  Sender: FDA-Public Use
  Company Number: FR-ACORDA-ACO_37380_2013

PATIENT
  Age: 46 Year
  Sex: Male
  Weight: 65 kg

DRUGS (3)
  1. FAMPYRA [Suspect]
     Indication: GAIT DISTURBANCE
     Dosage: 10 MG, BID
     Route: 048
     Dates: start: 20130613, end: 20130621
  2. LIORESAL [Concomitant]
     Indication: MUSCLE SPASTICITY
     Dosage: UNK,UNK
     Route: 065
     Dates: start: 201106
  3. TAMSULOSIN [Concomitant]
     Indication: BLADDER DISORDER
     Dosage: 0.4 MG, LP, BID
     Dates: start: 201105

REACTIONS (4)
  - Motor dysfunction [Recovered/Resolved with Sequelae]
  - Condition aggravated [Recovered/Resolved with Sequelae]
  - Walking disability [Recovered/Resolved with Sequelae]
  - Fatigue [Recovering/Resolving]
